FAERS Safety Report 25974143 (Version 1)
Quarter: 2025Q4

REPORT INFORMATION
  Report Type: Spontaneous
  Country: CN (occurrence: CN)
  Receive Date: 20251029
  Receipt Date: 20251029
  Transmission Date: 20260117
  Serious: Yes (Hospitalization)
  Sender: NOVARTIS
  Company Number: CN-002147023-NVSC2025CN162973

PATIENT
  Age: 64 Year
  Sex: Male
  Weight: 49 kg

DRUGS (4)
  1. AFINITOR [Suspect]
     Active Substance: EVEROLIMUS
     Indication: Metastases to kidney
     Dosage: 5 MG, QD
     Route: 048
     Dates: start: 20240918
  2. AFINITOR [Suspect]
     Active Substance: EVEROLIMUS
     Dosage: 5 MG, QD
     Route: 048
     Dates: start: 202403, end: 20251012
  3. VOROLANIB [Suspect]
     Active Substance: VOROLANIB
     Indication: Metastases to kidney
     Dosage: 200 MG, QD
     Route: 048
     Dates: start: 20240918
  4. VOROLANIB [Suspect]
     Active Substance: VOROLANIB
     Dosage: 200 MG, QD
     Route: 065
     Dates: start: 202503, end: 20251012

REACTIONS (9)
  - Stomatitis [Recovering/Resolving]
  - Gingival pain [Recovering/Resolving]
  - Oral pain [Recovering/Resolving]
  - Toothache [Recovering/Resolving]
  - Hair colour changes [Recovering/Resolving]
  - Decreased appetite [Recovering/Resolving]
  - Epistaxis [Unknown]
  - Weight decreased [Unknown]
  - Eating disorder [Recovering/Resolving]

NARRATIVE: CASE EVENT DATE: 20250901
